FAERS Safety Report 6376773-8 (Version None)
Quarter: 2009Q3

REPORT INFORMATION
  Report Type: 
  Country: None (occurrence: None)
  Receive Date: 20090925
  Receipt Date: 20090916
  Transmission Date: 20100115
  Serious: No
  Sender: FDA-Public Use
  Company Number: US-B.I. PHARMACEUTICALS,INC./RIDGEFIELD-2009-BP-10938BP

PATIENT
  Age: 80 Year
  Sex: Female

DRUGS (7)
  1. SPIRIVA [Suspect]
     Indication: CHRONIC OBSTRUCTIVE PULMONARY DISEASE
     Dosage: 18 MCG
     Route: 055
     Dates: start: 20050101
  2. POTASSIUM CHLORIDE [Concomitant]
  3. VITAMIN D [Concomitant]
  4. LISINOPRIL [Concomitant]
     Indication: BLOOD PRESSURE
  5. BUSPAR [Concomitant]
     Indication: NERVOUSNESS
  6. LORAZEPAM [Concomitant]
     Indication: SLEEP DISORDER
  7. EYE DROPS [Concomitant]
     Indication: GLAUCOMA

REACTIONS (1)
  - DRY MOUTH [None]
